FAERS Safety Report 14344053 (Version 1)
Quarter: 2017Q4

REPORT INFORMATION
  Report Type: Spontaneous
  Country: US (occurrence: US)
  Receive Date: 20171229
  Receipt Date: 20171229
  Transmission Date: 20180321
  Serious: No
  Sender: FDA-Public Use
  Company Number: None

PATIENT
  Sex: Female

DRUGS (1)
  1. NINLARO [Suspect]
     Active Substance: IXAZOMIB CITRATE
     Dosage: 4 MG WEEKLY, 3 WEEKS ON AND 1 WEEK OFF, PO
     Route: 048
     Dates: start: 20171121

REACTIONS (1)
  - Herpes zoster [None]
